FAERS Safety Report 9325712 (Version 1)
Quarter: 2013Q2

REPORT INFORMATION
  Report Type: Spontaneous
  Country: TW (occurrence: TW)
  Receive Date: 20130604
  Receipt Date: 20130604
  Transmission Date: 20140414
  Serious: Yes (Other)
  Sender: FDA-Public Use
  Company Number: TW-ROCHE-1231203

PATIENT
  Age: 21 Year
  Sex: Male

DRUGS (3)
  1. CLONAZEPAM [Suspect]
     Indication: PSYCHOTIC DISORDER
     Route: 065
  2. ZOTEPINE [Interacting]
     Indication: PSYCHOTIC DISORDER
     Route: 065
  3. ZOTEPINE [Interacting]
     Route: 065

REACTIONS (1)
  - Myopathy [Recovered/Resolved]
